FAERS Safety Report 14607286 (Version 3)
Quarter: 2018Q1

REPORT INFORMATION
  Report Type: Spontaneous
  Country: US (occurrence: US)
  Receive Date: 20180307
  Receipt Date: 20180328
  Transmission Date: 20180509
  Serious: No
  Sender: FDA-Public Use
  Company Number: US-PFIZER INC-2018091012

PATIENT
  Age: 6 Year
  Sex: Male
  Weight: 32 kg

DRUGS (4)
  1. GENOTROPIN MQ [Suspect]
     Active Substance: SOMATROPIN
     Dosage: 0.8 MG, ALTERNATE DAY
     Dates: start: 201802
  2. GENOTROPIN MQ [Suspect]
     Active Substance: SOMATROPIN
     Indication: HYPOPITUITARISM
     Dosage: 0.8 MG, 6 DAYS PER WEEK
  3. LEVOTHYROXINE. [Concomitant]
     Active Substance: LEVOTHYROXINE
     Indication: HYPOPITUITARISM
     Dosage: 68.5 UG, 1X/DAY
     Route: 048
  4. HYDROCORTISONE. [Concomitant]
     Active Substance: HYDROCORTISONE
     Dosage: 7.5 MG, DAILY  (3 DIFFERENT DOSES THROUGHOUT DAY)
     Route: 048
     Dates: start: 2011

REACTIONS (6)
  - Intentional product misuse [Unknown]
  - Pallor [Not Recovered/Not Resolved]
  - Blood glucose decreased [Unknown]
  - Ocular hyperaemia [Not Recovered/Not Resolved]
  - Malaise [Unknown]
  - Emotional disorder [Not Recovered/Not Resolved]

NARRATIVE: CASE EVENT DATE: 201802
